FAERS Safety Report 23741547 (Version 1)
Quarter: 2024Q2

REPORT INFORMATION
  Report Type: Other
  Country: US (occurrence: US)
  Receive Date: 20240415
  Receipt Date: 20240415
  Transmission Date: 20240715
  Serious: No
  Sender: FDA-Public Use
  Company Number: US-APOTEX-2024AP004283

PATIENT

DRUGS (1)
  1. LENALIDOMIDE [Suspect]
     Active Substance: LENALIDOMIDE
     Indication: Product used for unknown indication
     Dosage: UNK
     Route: 065

REACTIONS (6)
  - Product substitution issue [Unknown]
  - Swelling [Unknown]
  - Urticaria [Unknown]
  - Pruritus [Unknown]
  - Nausea [Unknown]
  - Abdominal pain upper [Unknown]
